FAERS Safety Report 25622746 (Version 2)
Quarter: 2025Q4

REPORT INFORMATION
  Report Type: Report from Study
  Country: US (occurrence: US)
  Receive Date: 20250730
  Receipt Date: 20251121
  Transmission Date: 20260117
  Serious: Yes (Death, Hospitalization)
  Sender: BOEHRINGER INGELHEIM
  Company Number: US-BoehringerIngelheim-2025-BI-084976

PATIENT
  Sex: Male

DRUGS (1)
  1. OFEV [Suspect]
     Active Substance: NINTEDANIB
     Indication: Product used for unknown indication

REACTIONS (3)
  - Lung neoplasm malignant [Fatal]
  - Internal haemorrhage [Unknown]
  - Splenectomy [Unknown]
